FAERS Safety Report 5276435-4 (Version None)
Quarter: 2007Q1

REPORT INFORMATION
  Report Type: 
  Country: None (occurrence: None)
  Receive Date: 20061213
  Receipt Date: 20040614
  Transmission Date: 20070707
  Serious: Yes (Hospitalization)
  Sender: FDA-Public Use
  Company Number: 2004AC00145

PATIENT
  Age: 58 Year
  Sex: Female

DRUGS (14)
  1. QUETIAPINE FUMARATE [Suspect]
     Indication: BIPOLAR DISORDER
     Dosage: 50 MG DAILY PO
     Route: 048
  2. VALPROIC ACID [Suspect]
     Dosage: 750 MG BID PO
     Route: 048
  3. VALPROIC ACID [Suspect]
     Dosage: 2000 MG DAILY PO
     Route: 048
  4. BUPROPION SUSTAINED RELEASE [Concomitant]
  5. GABAPENTIN [Concomitant]
  6. WARFARIN SODIUM [Concomitant]
  7. CLONIDINE [Concomitant]
  8. DOCUSATE [Concomitant]
  9. LEVODOPA [Concomitant]
  10. BUMETANIDE [Concomitant]
  11. LEVOTHYROXINE SODIUM [Concomitant]
  12. ESTRADIOL [Concomitant]
  13. CALCITRIOL [Concomitant]
  14. LISINOPRIL [Concomitant]

REACTIONS (1)
  - PANCREATITIS ACUTE [None]
